FAERS Safety Report 10149539 (Version 1)
Quarter: 2014Q2

REPORT INFORMATION
  Report Type: Spontaneous
  Country: GB (occurrence: None)
  Receive Date: 20140430
  Receipt Date: 20140430
  Transmission Date: 20141212
  Serious: Yes (Hospitalization, Disabling)
  Sender: FDA-Public Use
  Company Number: AUR-APL-2014-05088

PATIENT
  Age: 65 Year
  Sex: Male

DRUGS (8)
  1. SIMVASTATIN [Suspect]
     Indication: PRODUCT USED FOR UNKNOWN INDICATION
     Dates: start: 20140110
  2. ETAMETHASONE VALERATE (BETAMETHASONE VALERATE) [Concomitant]
  3. BISACODYL (BISACODYL) [Concomitant]
  4. CETIRAZINE (CETIRAZINE) [Concomitant]
  5. CYANOCOBALMIN (CYANOCOBALMIN) [Concomitant]
  6. HYDROCORTISONE (HYDROCORTISONE) [Concomitant]
  7. HYDROCOBALMIN (HYDROCOBALMIN) [Concomitant]
  8. LORATIDINE (LORATIDINE) [Concomitant]

REACTIONS (1)
  - Anaphylactic reaction [None]
